FAERS Safety Report 5710327-9 (Version None)
Quarter: 2008Q2

REPORT INFORMATION
  Report Type: 
  Country: None (occurrence: None)
  Receive Date: 20080414
  Receipt Date: 20080328
  Transmission Date: 20081010
  Serious: Yes (Death, Hospitalization)
  Sender: FDA-Public Use
  Company Number: 8031380

PATIENT
  Age: 21 Year
  Sex: Male
  Weight: 64 kg

DRUGS (5)
  1. PREDNISOLONE [Suspect]
     Dosage: 1 MG/KG /D IV
     Route: 042
  2. PREDNISOLONE [Suspect]
  3. PREDNISOLONE [Suspect]
     Dosage: 60 MG /D
  4. HEPARIN [Suspect]
     Dosage: IVI
     Route: 042
  5. HEPARIN [Suspect]
     Dosage: 12000 IU /D IV
     Route: 042

REACTIONS (21)
  - ACTIVATED PARTIAL THROMBOPLASTIN TIME PROLONGED [None]
  - BLOOD FIBRINOGEN INCREASED [None]
  - COAGULOPATHY [None]
  - DILATATION VENTRICULAR [None]
  - DISEASE COMPLICATION [None]
  - GLOMERULONEPHRITIS MINIMAL LESION [None]
  - INTESTINAL CONGESTION [None]
  - LYMPHOCYTE PERCENTAGE DECREASED [None]
  - NEUTROPHIL PERCENTAGE INCREASED [None]
  - PHARYNGEAL ERYTHEMA [None]
  - PLATELET COUNT DECREASED [None]
  - PLEURAL EFFUSION [None]
  - PULMONARY ARTERY THROMBOSIS [None]
  - PULMONARY CONGESTION [None]
  - PULMONARY HAEMORRHAGE [None]
  - PULMONARY INFARCTION [None]
  - RENAL VESSEL DISORDER [None]
  - SHOCK [None]
  - SWELLING [None]
  - TONSILLAR DISORDER [None]
  - WHITE BLOOD CELL COUNT INCREASED [None]
